FAERS Safety Report 5283693-9 (Version None)
Quarter: 2007Q2

REPORT INFORMATION
  Report Type: 
  Country: None (occurrence: None)
  Receive Date: 20070402
  Receipt Date: 20070323
  Transmission Date: 20071010
  Serious: Yes (Hospitalization)
  Sender: FDA-Public Use
  Company Number: JP-SANOFI-SYNTHELABO-F01200501582

PATIENT
  Sex: Male
  Weight: 65 kg

DRUGS (4)
  1. FLUOROURACIL [Suspect]
     Dosage: 2500 MG/BODY=1488.1 MG/M2 AS CONTINUOUS INFUSION, D1-2
     Route: 041
     Dates: start: 20050718, end: 20050719
  2. OXALIPLATIN [Suspect]
     Indication: RECTAL CANCER
     Route: 041
     Dates: start: 20050718, end: 20050718
  3. OXALIPLATIN [Suspect]
     Route: 041
     Dates: start: 20050718, end: 20050718
  4. ISOVORIN [Suspect]
     Route: 041
     Dates: start: 20050718, end: 20050719

REACTIONS (1)
  - GASTRIC ULCER [None]
